FAERS Safety Report 10677921 (Version 1)
Quarter: 2014Q4

REPORT INFORMATION
  Report Type: Spontaneous
  Country: US (occurrence: None)
  Receive Date: 20141223
  Receipt Date: 20141223
  Transmission Date: 20150529
  Serious: Yes (Hospitalization)
  Sender: FDA-Public Use
  Company Number: 2014-US-016576

PATIENT
  Age: 40 Year
  Sex: Female
  Weight: 72.6 kg

DRUGS (7)
  1. ATORVASTATION (ATORVASTATIN) [Concomitant]
  2. VITAMINS (VITAMINS) [Concomitant]
  3. SUBUTEX [Suspect]
     Active Substance: BUPRENORPHINE HYDROCHLORIDE
     Indication: PRODUCT USED FOR UNKNOWN INDICATION
  4. TRAZODONE [Concomitant]
     Active Substance: TRAZODONE HYDROCHLORIDE
  5. XYREM [Suspect]
     Active Substance: SODIUM OXYBATE
     Indication: NARCOLEPSY
     Route: 048
     Dates: start: 201302, end: 2013
  6. XYREM [Suspect]
     Active Substance: SODIUM OXYBATE
     Indication: CATAPLEXY
     Route: 048
     Dates: start: 201302, end: 2013
  7. LAMICTAL [Concomitant]
     Active Substance: LAMOTRIGINE

REACTIONS (12)
  - Condition aggravated [None]
  - Seizure [None]
  - Fall [None]
  - Drug dose omission [None]
  - Cataplexy [None]
  - Depressed mood [None]
  - Drug withdrawal syndrome [None]
  - Suicidal ideation [None]
  - Insomnia [None]
  - Drug detoxification [None]
  - Epistaxis [None]
  - Somnolence [None]

NARRATIVE: CASE EVENT DATE: 201411
